FAERS Safety Report 18377909 (Version 3)
Quarter: 2020Q4

REPORT INFORMATION
  Report Type: Spontaneous
  Country: JP (occurrence: JP)
  Receive Date: 20201013
  Receipt Date: 20201103
  Transmission Date: 20210114
  Serious: Yes (Hospitalization, Disabling, Other)
  Sender: FDA-Public Use
  Company Number: JP-PFIZER INC-2020393646

PATIENT
  Age: 69 Year
  Sex: Male
  Weight: 54 kg

DRUGS (2)
  1. VYNDAQEL [Suspect]
     Active Substance: TAFAMIDIS MEGLUMINE
     Indication: HEREDITARY NEUROPATHIC AMYLOIDOSIS
     Dosage: 80 MG, 1X/DAY (4 CAPSULES)
     Route: 048
     Dates: start: 20200116, end: 20200120
  2. VYNDAQEL [Suspect]
     Active Substance: TAFAMIDIS MEGLUMINE
     Dosage: 20 MG, 1X/DAY
     Route: 048
     Dates: start: 20200730, end: 20201015

REACTIONS (6)
  - Nausea [Recovered/Resolved]
  - Bradycardia [Unknown]
  - Sinus node dysfunction [Unknown]
  - Cardiac failure [Recovering/Resolving]
  - Acute myocardial infarction [Recovered/Resolved]
  - Disease progression [Unknown]

NARRATIVE: CASE EVENT DATE: 20200120
